FAERS Safety Report 4778412-6 (Version None)
Quarter: 2005Q3

REPORT INFORMATION
  Report Type: 
  Country: None (occurrence: None)
  Receive Date: 20050926
  Receipt Date: 20050920
  Transmission Date: 20060218
  Serious: Yes (Hospitalization)
  Sender: FDA-Public Use
  Company Number: IL-JNJFOC-20050904819

PATIENT
  Age: 13 Year
  Sex: Male
  Weight: 42 kg

DRUGS (2)
  1. IBUPROFEN [Suspect]
  2. DIPYRONE INJ [Suspect]

REACTIONS (1)
  - RENAL FAILURE ACUTE [None]
